FAERS Safety Report 9398500 (Version 2)
Quarter: 2013Q3

REPORT INFORMATION
  Report Type: Report from Study
  Country: FR (occurrence: FR)
  Receive Date: 20130712
  Receipt Date: 20130903
  Transmission Date: 20140515
  Serious: Yes (Hospitalization)
  Sender: FDA-Public Use
  Company Number: FR-ELI_LILLY_AND_COMPANY-FR201307001328

PATIENT
  Age: 55 Year
  Sex: Male
  Weight: 88 kg

DRUGS (7)
  1. PEMETREXED [Suspect]
     Indication: NON-SMALL CELL LUNG CANCER
     Dosage: 500 MG/M2, EVERY THREE WEEKS
     Route: 042
     Dates: start: 20120802
  2. FOLIC ACID [Concomitant]
     Indication: PREMEDICATION
     Dosage: UNK
     Dates: start: 20120715, end: 20130105
  3. VITAMIN B12 [Concomitant]
     Indication: PREMEDICATION
     Dosage: UNK
     Dates: start: 20120715, end: 20130105
  4. DEXAMETHASONE [Concomitant]
     Indication: PREMEDICATION
  5. SOLU-PRED [Concomitant]
     Indication: NAUSEA
     Dosage: UNK
     Dates: start: 20120914, end: 20120921
  6. MOTILIUM [Concomitant]
     Indication: NAUSEA
     Dosage: UNK
     Dates: start: 20120914, end: 20120921
  7. INEXIUM [Concomitant]
     Indication: GASTRITIS
     Dosage: UNK
     Dates: start: 20120914, end: 20120921

REACTIONS (1)
  - Febrile bone marrow aplasia [Recovered/Resolved]
